FAERS Safety Report 13885512 (Version 1)
Quarter: 2017Q3

REPORT INFORMATION
  Report Type: Spontaneous
  Country: FR (occurrence: FR)
  Receive Date: 20170821
  Receipt Date: 20170821
  Transmission Date: 20171127
  Serious: Yes (Hospitalization)
  Sender: FDA-Public Use
  Company Number: FR-PFIZER INC-2017355645

PATIENT
  Age: 88 Year
  Sex: Female

DRUGS (16)
  1. CALCIUM [Concomitant]
     Active Substance: CALCIUM
  2. AMLOR [Suspect]
     Active Substance: AMLODIPINE BESYLATE
     Dosage: 10 MG, 1X/DAY
     Route: 048
  3. RISPERDAL [Suspect]
     Active Substance: RISPERIDONE
     Dosage: 1 DF, 1X/DAY
     Route: 048
  4. NORMACOL [Concomitant]
     Active Substance: HERBALS\KARAYA GUM
  5. DAFALGAN [Concomitant]
     Active Substance: ACETAMINOPHEN
  6. INEXIUM /01479302/ [Concomitant]
     Active Substance: ESOMEPRAZOLE MAGNESIUM
  7. BRINTELLIX [Suspect]
     Active Substance: VORTIOXETINE HYDROBROMIDE
     Dosage: 1 DF, 1X/DAY
     Route: 048
  8. IMOVANE [Suspect]
     Active Substance: ZOPICLONE
     Dosage: 7.5 MG, 1X/DAY
     Route: 048
  9. CRESTOR [Concomitant]
     Active Substance: ROSUVASTATIN CALCIUM
  10. MOVICOL [Concomitant]
     Active Substance: POLYETHYLENE GLYCOL 3350\POTASSIUM CHLORIDE\SODIUM BICARBONATE\SODIUM CHLORIDE
  11. ZYMAD [Concomitant]
     Active Substance: CHOLECALCIFEROL
  12. HYLOVIS [Concomitant]
  13. TIAPRIDAL [Suspect]
     Active Substance: TIAPRIDE HYDROCHLORIDE
     Route: 048
  14. XANAX [Suspect]
     Active Substance: ALPRAZOLAM
     Dosage: 0.5 MG, DAILY
     Route: 048
  15. CORTANCYL [Concomitant]
     Active Substance: PREDNISONE
  16. KARDEGIC [Concomitant]
     Active Substance: ASPIRIN LYSINE

REACTIONS (3)
  - Vertigo [Unknown]
  - Fall [Unknown]
  - Orthostatic hypotension [Unknown]

NARRATIVE: CASE EVENT DATE: 20170726
